FAERS Safety Report 17003762 (Version 1)
Quarter: 2019Q4

REPORT INFORMATION
  Report Type: Spontaneous
  Country: ES (occurrence: ES)
  Receive Date: 20191107
  Receipt Date: 20191107
  Transmission Date: 20200122
  Serious: Yes (Other)
  Sender: FDA-Public Use
  Company Number: ES-TEVA-2019-ES-1132513

PATIENT
  Age: 27 Year
  Sex: Female

DRUGS (5)
  1. LEVETIRACETAM (1167A) [Suspect]
     Active Substance: LEVETIRACETAM
     Dosage: 1500 MG C/12H
     Route: 042
     Dates: start: 20180728, end: 20180730
  2. LEVETIRACETAM (1167A) [Suspect]
     Active Substance: LEVETIRACETAM
     Indication: EPILEPSY
     Dosage: 1500MG EVERY 12 HOURS
     Route: 048
     Dates: start: 20180730, end: 201901
  3. LEVETIRACETAM (1167A) [Suspect]
     Active Substance: LEVETIRACETAM
     Dosage: 1000-0-1500
     Route: 048
     Dates: start: 201901, end: 20190814
  4. LEVETIRACETAM (1167A) [Suspect]
     Active Substance: LEVETIRACETAM
     Dosage: 1000 MG INTRAVENOSA AHORA
     Route: 042
     Dates: start: 20190815, end: 20190815
  5. LEVETIRACETAM (1167A) [Suspect]
     Active Substance: LEVETIRACETAM
     Dosage: 1000 MG/12H
     Route: 048
     Dates: start: 201110, end: 20180727

REACTIONS (1)
  - Hypoglycaemia [Recovered/Resolved]

NARRATIVE: CASE EVENT DATE: 20190816
